FAERS Safety Report 18561214 (Version 5)
Quarter: 2021Q1

REPORT INFORMATION
  Report Type: Report from Study
  Country: US (occurrence: US)
  Receive Date: 20201130
  Receipt Date: 20210204
  Transmission Date: 20210419
  Serious: Yes (Other)
  Sender: FDA-Public Use
  Company Number: NVSC2020US313090

PATIENT
  Age: 36 Year
  Sex: Female

DRUGS (1)
  1. KESIMPTA [Suspect]
     Active Substance: OFATUMUMAB
     Indication: PRODUCT USED FOR UNKNOWN INDICATION
     Dosage: UNK
     Route: 065
     Dates: start: 20201008, end: 20201208

REACTIONS (13)
  - Multiple sclerosis relapse [Unknown]
  - Eye disorder [Unknown]
  - Decreased appetite [Not Recovered/Not Resolved]
  - Paraesthesia [Unknown]
  - Fatigue [Not Recovered/Not Resolved]
  - Anxiety [Unknown]
  - Depressed mood [Unknown]
  - Eye discharge [Not Recovered/Not Resolved]
  - Chills [Not Recovered/Not Resolved]
  - Hypoaesthesia [Unknown]
  - Dizziness [Unknown]
  - Abnormal behaviour [Unknown]
  - Muscle strain [Unknown]

NARRATIVE: CASE EVENT DATE: 202010
